FAERS Safety Report 6130385-X (Version None)
Quarter: 2009Q1

REPORT INFORMATION
  Report Type: 
  Country: None (occurrence: None)
  Receive Date: 20090324
  Receipt Date: 20090319
  Transmission Date: 20090719
  Serious: No
  Sender: FDA-Public Use
  Company Number: US-B.I. PHARMACEUTICALS,INC./RIDGEFIELD-2009-BP-02480BP

PATIENT
  Sex: Male

DRUGS (6)
  1. SPIRIVA [Suspect]
     Indication: BRONCHITIS
     Dosage: 18MCG
     Route: 055
     Dates: start: 20090219
  2. SPIRIVA [Suspect]
     Indication: DYSPNOEA
  3. METOCLOPRAMIDE [Concomitant]
     Indication: GASTROOESOPHAGEAL REFLUX DISEASE
  4. ALLEGRA D-24 [Concomitant]
     Indication: SINUS OPERATION
  5. CLORPREMATON [Concomitant]
  6. OMEPRAZOLE [Concomitant]

REACTIONS (1)
  - COUGH [None]
